FAERS Safety Report 5616448-3 (Version None)
Quarter: 2008Q1

REPORT INFORMATION
  Report Type: 
  Country: None (occurrence: None)
  Receive Date: 20080207
  Receipt Date: 20080128
  Transmission Date: 20080703
  Serious: Yes (Hospitalization)
  Sender: FDA-Public Use
  Company Number: AT-ELI_LILLY_AND_COMPANY-AT200801006214

PATIENT
  Age: 43 Year
  Sex: Female
  Weight: 69.2 kg

DRUGS (20)
  1. OLANZAPINE [Suspect]
     Indication: DEPRESSION
     Dosage: 15 MG, DAILY (1/D)
     Route: 048
     Dates: start: 20070918, end: 20070919
  2. OLANZAPINE [Suspect]
     Dosage: 20 MG, DAILY (1/D)
     Route: 048
     Dates: start: 20070920, end: 20071007
  3. OLANZAPINE [Suspect]
     Dosage: UNK, DAILY (1/D)
     Route: 048
     Dates: end: 20071001
  4. IXEL [Concomitant]
     Dosage: 150 MG, DAILY (1/D)
     Dates: start: 20070905, end: 20070917
  5. IXEL [Concomitant]
     Dosage: 100 MG, 2/D
     Dates: start: 20070918
  6. DOMINAL FORTE [Concomitant]
     Dosage: 120 MG, DAILY (1/D)
     Dates: start: 20070921, end: 20070923
  7. DOMINAL FORTE [Concomitant]
     Dosage: 160 MG, DAILY (1/D)
     Dates: start: 20070924
  8. TOLVON [Concomitant]
     Dosage: 30 MG, DAILY (1/D)
     Dates: start: 20070926, end: 20070927
  9. TOLVON [Concomitant]
     Dosage: 60 MG, DAILY (1/D)
     Dates: start: 20070928, end: 20071002
  10. TOLVON [Concomitant]
     Dosage: 120 MG, DAILY (1/D)
     Dates: start: 20071003
  11. TEMESTA [Concomitant]
     Dosage: 5 MG, DAILY (1/D)
     Dates: start: 20070824
  12. TEMESTA [Concomitant]
     Dosage: 8.75 MG, DAILY (1/D)
     Dates: start: 20070825
  13. TEMESTA [Concomitant]
     Dosage: 10 MG, UNK
     Dates: start: 20070826
  14. TEMESTA [Concomitant]
     Dosage: 6.25 MG, UNK
     Dates: start: 20070827
  15. TEMESTA [Concomitant]
     Dosage: 7.5 MG, UNK
     Dates: start: 20070828, end: 20071016
  16. TEMESTA [Concomitant]
     Dosage: 6.25 MG, DAILY (1/D)
     Dates: start: 20071017
  17. TEMESTA [Concomitant]
     Dosage: 2.5 MG, DAILY (1/D)
     Dates: start: 20071001
  18. NOZINAN [Concomitant]
     Dosage: 50 MG, DAILY (1/D)
     Dates: start: 20071003, end: 20071007
  19. EFFORTIL-DEPOT [Concomitant]
     Dosage: UNK UNK, DAILY (1/D)
     Dates: start: 20070906, end: 20071019
  20. MOVICOL [Concomitant]
     Dosage: 3 D/F, DAILY (1/D)
     Dates: start: 20071002, end: 20071017

REACTIONS (3)
  - EXTRAPYRAMIDAL DISORDER [None]
  - RESTLESS LEGS SYNDROME [None]
  - SLEEP DISORDER [None]
